FAERS Safety Report 8391605-4 (Version None)
Quarter: 2012Q2

REPORT INFORMATION
  Report Type: 
  Country: None (occurrence: None)
  Receive Date: 20120529
  Receipt Date: 20120518
  Transmission Date: 20120825
  Serious: Yes (Hospitalization)
  Sender: FDA-Public Use
  Company Number: BR-ASTRAZENECA-2012SE32203

PATIENT
  Age: 33 Year
  Sex: Male
  Weight: 84 kg

DRUGS (2)
  1. LOSARTAN POTASSIUM [Concomitant]
     Route: 048
     Dates: start: 20090101
  2. NEXIUM [Suspect]
     Indication: GASTRITIS
     Route: 048
     Dates: start: 20110101

REACTIONS (2)
  - ANAEMIA [None]
  - BENIGN PANCREATIC NEOPLASM [None]
